FAERS Safety Report 17292324 (Version 1)
Quarter: 2020Q1

REPORT INFORMATION
  Report Type: Spontaneous
  Country: CN (occurrence: CN)
  Receive Date: 20200121
  Receipt Date: 20200121
  Transmission Date: 20200409
  Serious: Yes (Life-Threatening)
  Sender: FDA-Public Use
  Company Number: CN-BAYER-2019-228480

PATIENT
  Age: 48 Year
  Sex: Male
  Weight: 56 kg

DRUGS (4)
  1. DEXAMETHASONE SODIUM PHOSPHATE. [Concomitant]
     Active Substance: DEXAMETHASONE SODIUM PHOSPHATE
     Indication: HYPERSENSITIVITY
     Dosage: 5 MG, QD
     Route: 041
     Dates: start: 20191201, end: 20191201
  2. GLYCERYL TRINITRATE [Concomitant]
     Active Substance: NITROGLYCERIN
     Dosage: 10 MG, QD
     Dates: start: 20191130, end: 20191201
  3. IOPROMIDE. [Suspect]
     Active Substance: IOPROMIDE
     Indication: ANGIOGRAM PERIPHERAL
  4. IOPROMIDE. [Suspect]
     Active Substance: IOPROMIDE
     Indication: PERCUTANEOUS CORONARY INTERVENTION
     Dosage: 50 ML, ONCE, ARTERY INJECTION
     Dates: start: 20191201, end: 20191201

REACTIONS (6)
  - Blood pressure decreased [Recovered/Resolved]
  - Chest discomfort [None]
  - Chest pain [None]
  - Shock [Recovering/Resolving]
  - Abdominal discomfort [None]
  - Palpitations [None]

NARRATIVE: CASE EVENT DATE: 20191201
